FAERS Safety Report 8360069-9 (Version None)
Quarter: 2012Q2

REPORT INFORMATION
  Report Type: 
  Country: None (occurrence: None)
  Receive Date: 20120515
  Receipt Date: 20120511
  Transmission Date: 20120825
  Serious: Yes (Hospitalization, Other)
  Sender: FDA-Public Use
  Company Number: PHHY2012JP009862

PATIENT
  Sex: Male
  Weight: 58 kg

DRUGS (11)
  1. ARICEPT [Suspect]
     Indication: DEMENTIA
     Dosage: 5 MG,
     Route: 048
     Dates: start: 20100101, end: 20120118
  2. AMLODIPINE [Concomitant]
     Dosage: 5 MG, UNK
     Route: 048
  3. MUCOSTA [Concomitant]
     Dosage: 3 DF, UNK
  4. METFFORMIN HYDROCHLORIDE [Concomitant]
     Dosage: 500 MG, UNK
     Route: 048
  5. LIPITOR [Concomitant]
     Dosage: 10 MG, UNK
     Route: 048
  6. SENNOSIDE [Concomitant]
     Dosage: 1 DF, UNK
  7. TASIGNA [Suspect]
     Dosage: 400 MG, DAILY
     Route: 048
     Dates: start: 20120221
  8. AMARYL [Concomitant]
     Dosage: 0.5 MG, UNK
     Route: 048
  9. TASIGNA [Suspect]
     Indication: CHRONIC MYELOID LEUKAEMIA
     Dosage: 400 MG, DAILY
     Route: 048
     Dates: start: 20120112, end: 20120117
  10. LOSARTAN POTASSIUM [Concomitant]
     Dosage: 100 MG, UNK
     Route: 048
  11. SHINLUCK [Concomitant]
     Dosage: UNK UKN, UNK

REACTIONS (7)
  - ELECTROCARDIOGRAM QT PROLONGED [None]
  - ABNORMAL SENSATION IN EYE [None]
  - SYNCOPE [None]
  - CARDIO-RESPIRATORY ARREST [None]
  - TORSADE DE POINTES [None]
  - CARDIAC FAILURE CONGESTIVE [None]
  - COUGH [None]
